FAERS Safety Report 14160877 (Version 1)
Quarter: 2017Q4

REPORT INFORMATION
  Report Type: Other
  Country: CA (occurrence: CA)
  Receive Date: 20171106
  Receipt Date: 20171106
  Transmission Date: 20180321
  Serious: Yes (Other)
  Sender: FDA-Public Use
  Company Number: CA-APOTEX-2017AP020533

PATIENT
  Age: 34 Year
  Sex: Female
  Weight: 81.6 kg

DRUGS (2)
  1. APO-LEVETIRACETAM [Suspect]
     Active Substance: LEVETIRACETAM
     Indication: SEIZURE
     Dosage: 1500 MG, BID
     Route: 048
  2. APO-LEVETIRACETAM [Suspect]
     Active Substance: LEVETIRACETAM
     Dosage: 1500 MG, QD
     Route: 048

REACTIONS (2)
  - Product substitution issue [Recovered/Resolved]
  - Seizure [Recovered/Resolved]
